FAERS Safety Report 7411173-0 (Version None)
Quarter: 2011Q2

REPORT INFORMATION
  Report Type: 
  Country: None (occurrence: None)
  Receive Date: 20110413
  Receipt Date: 20100407
  Transmission Date: 20111010
  Serious: Yes (Other)
  Sender: FDA-Public Use
  Company Number: US-BRISTOL-MYERS SQUIBB COMPANY-15038417

PATIENT
  Age: 61 Year
  Sex: Male

DRUGS (5)
  1. ERBITUX [Suspect]
     Indication: COLORECTAL CANCER METASTATIC
     Dosage: TAKEN ERBITUX 3-6 MONTHS AGO,16SEP,07OCT09
     Route: 042
     Dates: start: 20090901
  2. ACETAMINOPHEN [Concomitant]
     Indication: PREMEDICATION
  3. CAMPTOSAR [Suspect]
     Indication: COLON CANCER
     Dosage: 16SEP,07OCT09
     Route: 042
     Dates: start: 20090901
  4. BENZENE [Concomitant]
     Indication: PREMEDICATION
     Dosage: 1 DF-25 UNITS NOT SPECIFIED.
  5. DECADRON [Concomitant]
     Indication: PREMEDICATION

REACTIONS (1)
  - INFUSION RELATED REACTION [None]
